FAERS Safety Report 15660121 (Version 1)
Quarter: 2018Q4

REPORT INFORMATION
  Report Type: Spontaneous
  Country: BR (occurrence: BR)
  Receive Date: 20181127
  Receipt Date: 20181127
  Transmission Date: 20190205
  Serious: Yes (Other)
  Sender: FDA-Public Use
  Company Number: BR-CELLTRION INC.-2018BR023978

PATIENT

DRUGS (1)
  1. REMSIMA [Suspect]
     Active Substance: INFLIXIMAB
     Indication: PRODUCT USED FOR UNKNOWN INDICATION
     Dosage: UNK
     Route: 065
     Dates: start: 20181113, end: 20181113

REACTIONS (6)
  - Erythema [Unknown]
  - Tremor [Unknown]
  - Blood pressure fluctuation [Unknown]
  - Dyspnoea [Unknown]
  - Laryngeal oedema [Unknown]
  - Vomiting [Unknown]

NARRATIVE: CASE EVENT DATE: 20181113
